FAERS Safety Report 8372149-2 (Version None)
Quarter: 2012Q2

REPORT INFORMATION
  Report Type: 
  Country: None (occurrence: None)
  Receive Date: 20120521
  Receipt Date: 20120510
  Transmission Date: 20120825
  Serious: Yes (Hospitalization)
  Sender: FDA-Public Use
  Company Number: NO-BIOGENIDEC-2012BI006860

PATIENT
  Age: 43 Year
  Sex: Female

DRUGS (6)
  1. TYSABRI [Suspect]
     Indication: RELAPSING-REMITTING MULTIPLE SCLEROSIS
     Route: 042
     Dates: start: 20080701
  2. OXAZEPAM [Concomitant]
     Indication: ANXIETY
  3. PINEX FORTE [Concomitant]
     Indication: PAIN
  4. PINEX FORTE [Concomitant]
     Indication: SENSORY DISTURBANCE
  5. IMOVANE [Concomitant]
     Indication: INSOMNIA
  6. CETERICIN [Concomitant]
     Indication: MULTIPLE ALLERGIES

REACTIONS (1)
  - MIGRAINE [None]
